FAERS Safety Report 16956511 (Version 1)
Quarter: 2019Q4

REPORT INFORMATION
  Report Type: Report from Study
  Country: US (occurrence: US)
  Receive Date: 20191024
  Receipt Date: 20191024
  Transmission Date: 20200122
  Serious: No
  Sender: FDA-Public Use
  Company Number: US-KYOWAKIRIN-2019BKK016507

PATIENT

DRUGS (1)
  1. CRYSVITA [Suspect]
     Active Substance: BUROSUMAB-TWZA
     Indication: PRODUCT USED FOR UNKNOWN INDICATION
     Dosage: 40 MG (2 INJECTIONS) , 1X/2 WEEKS
     Route: 058
     Dates: start: 20190927

REACTIONS (2)
  - Musculoskeletal chest pain [Unknown]
  - Costochondritis [Unknown]

NARRATIVE: CASE EVENT DATE: 2019
